FAERS Safety Report 20615101 (Version 2)
Quarter: 2022Q2

REPORT INFORMATION
  Report Type: Spontaneous
  Country: FR (occurrence: FR)
  Receive Date: 20220321
  Receipt Date: 20220407
  Transmission Date: 20220720
  Serious: Yes (Death, Other)
  Sender: FDA-Public Use
  Company Number: FR-AFSSAPS-TS20220714

PATIENT
  Age: 93 Year
  Sex: Female

DRUGS (6)
  1. ACEBUTOLOL [Suspect]
     Active Substance: ACEBUTOLOL
     Indication: Medication error
     Dosage: 200 MILLIGRAM, ONCE A DAY
     Route: 048
     Dates: start: 20220209, end: 20220209
  2. AMIODARONE [Suspect]
     Active Substance: AMIODARONE
     Indication: Medication error
     Dosage: 200 MILLIGRAM, ONCE A DAY
     Route: 048
     Dates: start: 20220209, end: 20220209
  3. GABAPENTIN [Suspect]
     Active Substance: GABAPENTIN
     Indication: Medication error
     Dosage: 100 MILLIGRAM, ONCE A DAY
     Route: 048
     Dates: start: 20220209, end: 20220209
  4. CANDESARTAN CILEXETIL\HYDROCHLOROTHIAZIDE [Suspect]
     Active Substance: CANDESARTAN CILEXETIL\HYDROCHLOROTHIAZIDE
     Indication: Medication error
     Dosage: 16 MILLIGRAM, ONCE A DAY
     Route: 048
     Dates: start: 20220209, end: 20220209
  5. RILMENIDINE PHOSPHATE [Suspect]
     Active Substance: RILMENIDINE PHOSPHATE
     Indication: Medication error
     Dosage: 1 MILLIGRAM, ONCE A DAY
     Route: 048
     Dates: start: 20220209, end: 20220209
  6. LOXOPROFEN SODIUM [Suspect]
     Active Substance: LOXOPROFEN SODIUM
     Indication: Medication error
     Dosage: 5 MILLIGRAM, ONCE A DAY
     Route: 048
     Dates: start: 20220209, end: 20220209

REACTIONS (3)
  - Sudden death [Fatal]
  - Cardiac arrest [Fatal]
  - Medication error [Unknown]

NARRATIVE: CASE EVENT DATE: 20220209
